FAERS Safety Report 24462673 (Version 1)
Quarter: 2024Q4

REPORT INFORMATION
  Report Type: Spontaneous
  Country: US (occurrence: US)
  Receive Date: 20241018
  Receipt Date: 20241018
  Transmission Date: 20250115
  Serious: No
  Sender: CIPLA
  Company Number: US-CIPLA LTD.-2024US00600

PATIENT

DRUGS (6)
  1. AMLODIPINE [Suspect]
     Active Substance: AMLODIPINE BESYLATE
     Indication: Hypertension
     Dosage: 2.5 MG, QD (1 TABLET ONCE A DAY)
     Route: 048
     Dates: start: 20240108
  2. AMLODIPINE [Suspect]
     Active Substance: AMLODIPINE BESYLATE
     Dosage: 5 MG, UNK
     Route: 065
  3. ZOLPIDEM [Concomitant]
     Active Substance: ZOLPIDEM TARTRATE
     Indication: Sleep disorder
     Dosage: (5 MG TABLET / PATIENT HARDLY EVER TAKE WHOLE TABLET. SOMETIMES PATIENT TOOK HALF A TABLET, (PATIENT
     Route: 065
     Dates: start: 2006
  4. PREMARIN [Concomitant]
     Active Substance: ESTROGENS, CONJUGATED
     Indication: Dry skin prophylaxis
     Dosage: 0.625 MG CREAM / SHE WAS USING IT MAYBE ONCE A MONTH
     Route: 065
     Dates: start: 2019
  5. ACYCLOVIR [Concomitant]
     Active Substance: ACYCLOVIR
     Indication: Herpes zoster
     Dosage: PATIENT WAS TAKING IT DAILY AND THE STRENGTH VARIED FROM 100 MG TO 400 MG. SOMETIMES WHEN PATIENT WA
     Route: 065
  6. GABAPENTIN [Concomitant]
     Active Substance: GABAPENTIN
     Indication: Herpes zoster
     Dosage: (100 MG CAPSULES / 100 MG TO 400 MG DAILY)
     Route: 065

REACTIONS (2)
  - Blood pressure increased [Not Recovered/Not Resolved]
  - Heart rate increased [Not Recovered/Not Resolved]

NARRATIVE: CASE EVENT DATE: 20240108
